FAERS Safety Report 9271918 (Version 2)
Quarter: 2013Q2

REPORT INFORMATION
  Report Type: Report from Study
  Country: US (occurrence: US)
  Receive Date: 20130506
  Receipt Date: 20130516
  Transmission Date: 20140414
  Serious: Yes (Other)
  Sender: FDA-Public Use
  Company Number: US-ACTELION-A-NJ2013-82711

PATIENT
  Age: 45 Year
  Sex: Female

DRUGS (8)
  1. TRACLEER [Suspect]
     Indication: PULMONARY ARTERIAL HYPERTENSION
     Dosage: UNK
     Route: 048
     Dates: start: 20081203
  2. TRACLEER [Suspect]
     Dosage: UNK
     Route: 048
  3. PLAQUENIL [Concomitant]
  4. AMBIEN [Concomitant]
  5. PAXIL [Concomitant]
  6. NORVASC [Concomitant]
  7. FOLGARD [Concomitant]
  8. FEOSOL [Concomitant]

REACTIONS (2)
  - Breast cancer [Unknown]
  - Mastectomy [Unknown]
